FAERS Safety Report 5361835-4 (Version None)
Quarter: 2007Q2

REPORT INFORMATION
  Report Type: 
  Country: None (occurrence: None)
  Receive Date: 20070530
  Receipt Date: 20070313
  Transmission Date: 20071010
  Serious: No
  Sender: FDA-Public Use
  Company Number: 2007PV031625

PATIENT
  Age: 36 Year
  Sex: Female

DRUGS (4)
  1. BYETTA [Suspect]
     Indication: GLUCOSE TOLERANCE IMPAIRED
     Dosage: SEE IMAGE
     Route: 058
     Dates: start: 20070115, end: 20070201
  2. BYETTA [Suspect]
     Indication: GLUCOSE TOLERANCE IMPAIRED
     Dosage: SEE IMAGE
     Route: 058
     Dates: start: 20070201
  3. LISINOPRIL [Concomitant]
  4. VYTORIN [Concomitant]

REACTIONS (2)
  - BREAST DISCHARGE [None]
  - BREAST TENDERNESS [None]
